FAERS Safety Report 5249036-1 (Version None)
Quarter: 2007Q1

REPORT INFORMATION
  Report Type: 
  Country: None (occurrence: None)
  Receive Date: 20070228
  Receipt Date: 20060608
  Transmission Date: 20070707
  Serious: No
  Sender: FDA-Public Use
  Company Number: US-GLAXOSMITHKLINE-A0608357A

PATIENT
  Age: 38 Year
  Sex: Male

DRUGS (1)
  1. VALTREX [Suspect]
     Dosage: 1000MG PER DAY
     Route: 048
     Dates: end: 20060501

REACTIONS (2)
  - PRURITUS [None]
  - RASH [None]
